FAERS Safety Report 15605619 (Version 1)
Quarter: 2018Q4

REPORT INFORMATION
  Report Type: Report from Study
  Country: None (occurrence: US)
  Receive Date: 20181112
  Receipt Date: 20181112
  Transmission Date: 20190205
  Serious: Yes (Hospitalization, Other)
  Sender: FDA-Public Use
  Company Number: US-ABBVIE-16K-163-1776550-00

PATIENT
  Sex: Male

DRUGS (1)
  1. HUMIRA [Suspect]
     Active Substance: ADALIMUMAB
     Indication: PSORIASIS
     Route: 058

REACTIONS (14)
  - Dental caries [Unknown]
  - Injection site pain [Recovered/Resolved]
  - Cyst [Not Recovered/Not Resolved]
  - Back pain [Not Recovered/Not Resolved]
  - Road traffic accident [Unknown]
  - Fatigue [Unknown]
  - Sensitivity to weather change [Not Recovered/Not Resolved]
  - Peroneal nerve palsy [Unknown]
  - Pulmonary mass [Not Recovered/Not Resolved]
  - Heart rate decreased [Recovered/Resolved]
  - Scrotal mass [Unknown]
  - Testicular mass [Not Recovered/Not Resolved]
  - Sciatica [Not Recovered/Not Resolved]
  - Hip arthroplasty [Recovered/Resolved]

NARRATIVE: CASE EVENT DATE: 2009
